FAERS Safety Report 26133034 (Version 1)
Quarter: 2025Q4

REPORT INFORMATION
  Report Type: Spontaneous
  Country: BR (occurrence: BR)
  Receive Date: 20251209
  Receipt Date: 20251209
  Transmission Date: 20260118
  Serious: Yes (Other)
  Sender: GLAXOSMITHKLINE
  Company Number: BR-GSK-BR2025AMR140227

PATIENT
  Age: 30 Year
  Sex: Female
  Weight: 83 kg

DRUGS (1)
  1. NUCALA [Suspect]
     Active Substance: MEPOLIZUMAB
     Indication: Product used for unknown indication
     Dosage: 100 MG

REACTIONS (16)
  - Cerebral atrophy [Unknown]
  - Cerebral microhaemorrhage [Unknown]
  - Cerebral haemorrhage [Unknown]
  - Confusional state [Unknown]
  - Amnesia [Unknown]
  - Transient global amnesia [Unknown]
  - Emotional distress [Unknown]
  - Microangiopathy [Unknown]
  - Chronic sinusitis [Unknown]
  - Gliosis [Unknown]
  - Blood urea increased [Unknown]
  - Blood glucose increased [Unknown]
  - Glycosylated haemoglobin increased [Unknown]
  - Low density lipoprotein increased [Unknown]
  - Vitamin D decreased [Unknown]
  - Urinary tract infection [Unknown]

NARRATIVE: CASE EVENT DATE: 20251025
